FAERS Safety Report 5278863-X (Version None)
Quarter: 2007Q1

REPORT INFORMATION
  Report Type: 
  Country: None (occurrence: None)
  Receive Date: 20070328
  Receipt Date: 20070320
  Transmission Date: 20070707
  Serious: Yes (Hospitalization)
  Sender: FDA-Public Use
  Company Number: 2007SE01117

PATIENT
  Age: 28818 Day
  Sex: Female
  Weight: 55 kg

DRUGS (5)
  1. BLOPRESS PLUS [Suspect]
     Indication: HYPERTENSION
     Dosage: CANDESARTAN CILEXETIL 16 MG AND HCT 12.5 MG
     Route: 048
     Dates: start: 20050121
  2. KERLONE [Concomitant]
     Indication: HYPERTENSION
     Route: 048
  3. TEBONIN [Concomitant]
     Route: 048
  4. ADUMBRAN [Concomitant]
     Route: 048
  5. DICLOFENAC SODIUM [Concomitant]
     Indication: CONSTIPATION
     Route: 054
     Dates: start: 20070110, end: 20070110

REACTIONS (7)
  - FALL [None]
  - HYPERTENSIVE CRISIS [None]
  - HYPOKALAEMIA [None]
  - HYPONATRAEMIA [None]
  - PYREXIA [None]
  - SOMNOLENCE [None]
  - URINARY TRACT INFECTION [None]
